FAERS Safety Report 6327250-1 (Version None)
Quarter: 2009Q3

REPORT INFORMATION
  Report Type: 
  Country: None (occurrence: None)
  Receive Date: 20090825
  Receipt Date: 20090818
  Transmission Date: 20100115
  Serious: Yes (Death, Hospitalization)
  Sender: FDA-Public Use
  Company Number: FR-TEVA-203110ISR

PATIENT
  Sex: Female

DRUGS (9)
  1. VINCRISTINE [Suspect]
     Indication: ACUTE LYMPHOCYTIC LEUKAEMIA
     Route: 042
     Dates: start: 20090416, end: 20090416
  2. PREDNISONE TAB [Suspect]
     Indication: ACUTE LYMPHOCYTIC LEUKAEMIA
     Route: 048
     Dates: start: 20090408, end: 20090413
  3. CYTARABINE [Suspect]
     Indication: ACUTE LYMPHOCYTIC LEUKAEMIA
     Route: 039
     Dates: start: 20090416, end: 20090416
  4. METHYLPREDNISOLONE ACETATE [Suspect]
     Indication: ACUTE LYMPHOCYTIC LEUKAEMIA
     Route: 039
     Dates: start: 20090416, end: 20090416
  5. METHOTREXATE [Suspect]
     Indication: ACUTE LYMPHOCYTIC LEUKAEMIA
     Route: 039
     Dates: start: 20090416, end: 20090416
  6. CYCLOPHOSPHAMIDE [Suspect]
     Indication: ACUTE LYMPHOCYTIC LEUKAEMIA
     Route: 042
     Dates: start: 20090416, end: 20090416
  7. CYCLOPHOSPHAMIDE [Suspect]
     Route: 042
     Dates: start: 20090416, end: 20090416
  8. DAUNORUBICIN HYDROCHLORIDE [Suspect]
     Indication: ACUTE LYMPHOCYTIC LEUKAEMIA
     Route: 042
     Dates: start: 20090416, end: 20090419
  9. DAUNORUBICIN HYDROCHLORIDE [Suspect]
     Route: 042
     Dates: start: 20090416, end: 20090416

REACTIONS (1)
  - VASCULITIS CEREBRAL [None]
